FAERS Safety Report 8369883-7 (Version None)
Quarter: 2012Q2

REPORT INFORMATION
  Report Type: 
  Country: None (occurrence: None)
  Receive Date: 20120518
  Receipt Date: 20120507
  Transmission Date: 20120825
  Serious: Yes (Other)
  Sender: FDA-Public Use
  Company Number: US-JNJFOC-20120507743

PATIENT
  Sex: Female
  Weight: 103.87 kg

DRUGS (8)
  1. RANITIDINE [Concomitant]
     Route: 065
  2. SONATA [Concomitant]
     Route: 065
  3. TRIAMTERENE AND HYDROCHLOROTHIAZIDE [Concomitant]
     Route: 065
  4. METHOTREXATE [Concomitant]
     Route: 065
  5. FOLIC ACID [Concomitant]
     Route: 065
  6. REMICADE [Suspect]
     Indication: RHEUMATOID ARTHRITIS
     Route: 042
     Dates: start: 20021001
  7. LISINOPRIL [Concomitant]
     Route: 065
  8. VICODIN [Concomitant]
     Route: 065

REACTIONS (3)
  - CARDIAC STRESS TEST ABNORMAL [None]
  - CORONARY ARTERIAL STENT INSERTION [None]
  - CHEST PAIN [None]
